FAERS Safety Report 6946210-0 (Version None)
Quarter: 2010Q3

REPORT INFORMATION
  Report Type: 
  Country: None (occurrence: None)
  Receive Date: 20100827
  Receipt Date: 20100819
  Transmission Date: 20110219
  Serious: Yes (Hospitalization, Other)
  Sender: FDA-Public Use
  Company Number: CA-ABBOTT-10P-028-0665385-00

PATIENT
  Sex: Female
  Weight: 78.996 kg

DRUGS (13)
  1. HUMIRA [Suspect]
     Indication: RHEUMATOID ARTHRITIS
     Route: 058
  2. HUMIRA [Suspect]
     Dates: start: 20100819
  3. METOPROLOL [Concomitant]
     Indication: BLOOD PRESSURE
     Route: 048
  4. AMLODIPINE [Concomitant]
     Indication: BLOOD PRESSURE
     Route: 048
  5. OMEPRAZOLE [Concomitant]
     Indication: GASTROINTESTINAL DISORDER
     Route: 048
  6. ASPIRIN [Concomitant]
     Indication: CARDIOVASCULAR DISORDER
     Route: 048
  7. CALCIUM W/VITAMIN D [Concomitant]
     Indication: BONE DISORDER
     Dosage: 500 MG + 400 IU (1 TAB)
     Route: 048
  8. CORTISONE ACETATE [Concomitant]
     Indication: RHEUMATOID ARTHRITIS
     Route: 058
  9. TYLENOL-500 [Concomitant]
     Indication: HEADACHE
     Route: 048
  10. METHOTREXATE [Concomitant]
     Indication: RHEUMATOID ARTHRITIS
     Dosage: 1 INJECTION
     Route: 058
  11. PREDNISONE [Concomitant]
     Indication: RHEUMATOID ARTHRITIS
     Dosage: AM
     Route: 048
  12. FOLIC ACID [Concomitant]
     Indication: PRODUCT USED FOR UNKNOWN INDICATION
     Route: 048
  13. PMS-PANTOPRAZOLE [Concomitant]
     Indication: PRODUCT USED FOR UNKNOWN INDICATION
     Dosage: AM
     Route: 048

REACTIONS (8)
  - CARDITIS [None]
  - DEHYDRATION [None]
  - DIZZINESS [None]
  - HEART RATE IRREGULAR [None]
  - HYPOPHAGIA [None]
  - PULMONARY OEDEMA [None]
  - URINARY TRACT INFECTION [None]
  - VOMITING [None]
